FAERS Safety Report 9303687 (Version 2)
Quarter: 2013Q2

REPORT INFORMATION
  Report Type: Spontaneous
  Country: US (occurrence: None)
  Receive Date: 20130516
  Receipt Date: 20130522
  Transmission Date: 20140414
  Serious: Yes (Other)
  Sender: FDA-Public Use
  Company Number: US-1198133

PATIENT
  Sex: Female

DRUGS (4)
  1. NEVANAC [Suspect]
     Indication: CATARACT OPERATION
     Route: 047
     Dates: start: 20130415
  2. DUREZOL [Suspect]
     Indication: CATARACT OPERATION
     Route: 047
     Dates: start: 201304
  3. BESIVANCE [Concomitant]
  4. AMLODIPINE [Concomitant]

REACTIONS (3)
  - Blood pressure increased [None]
  - Anxiety [None]
  - Dysgeusia [None]
